FAERS Safety Report 6387348-9 (Version None)
Quarter: 2009Q3

REPORT INFORMATION
  Report Type: 
  Country: None (occurrence: None)
  Receive Date: 20090930
  Receipt Date: 20090914
  Transmission Date: 20100115
  Serious: Yes (Hospitalization)
  Sender: FDA-Public Use
  Company Number: 2009AL003342

PATIENT
  Age: 74 Year
  Sex: Male

DRUGS (35)
  1. DIGOXIN [Suspect]
     Dosage: 0.125MG, QD, PO
     Route: 048
     Dates: start: 20010101
  2. SPIRIVA [Concomitant]
  3. CAPTOPRIL [Concomitant]
  4. FLOMAX [Concomitant]
  5. NASONEX [Concomitant]
  6. ADVAIR DISKUS 100/50 [Concomitant]
  7. NASONEX [Concomitant]
  8. PLAVIX [Concomitant]
  9. KEFLEX [Concomitant]
  10. PRILOSEC [Concomitant]
  11. ASPIRIN [Concomitant]
  12. AZITHROMYCIN [Concomitant]
  13. SINGULAIR [Concomitant]
  14. PULMICORT [Concomitant]
  15. PREDNISONE [Concomitant]
  16. DUONEB [Concomitant]
  17. OMEPRAZOLE [Concomitant]
  18. SOLU-MEDROL [Concomitant]
  19. ALBUTEROL [Concomitant]
  20. MUCINEX [Concomitant]
  21. GUAIFENESIN [Concomitant]
  22. ZITHROMAX [Concomitant]
  23. SOTALOL [Concomitant]
  24. METOPROLOL [Concomitant]
  25. DIAZEPAM [Concomitant]
  26. LISINOPRIL [Concomitant]
  27. FUROSEMIDE [Concomitant]
  28. COUMADIN [Concomitant]
  29. TYLENOL (CAPLET) [Concomitant]
  30. LEVAQUIN [Concomitant]
  31. ROCEPHIN [Concomitant]
  32. COMBIVENT [Concomitant]
  33. OXYGEN [Concomitant]
  34. CIPROFLOXACIN HYDROCHLORIDE [Concomitant]
  35. MEDROL [Concomitant]

REACTIONS (21)
  - ARTHRALGIA [None]
  - BENIGN PROSTATIC HYPERPLASIA [None]
  - BRONCHITIS [None]
  - CHEST DISCOMFORT [None]
  - CHRONIC OBSTRUCTIVE PULMONARY DISEASE [None]
  - DYSPNOEA [None]
  - ECONOMIC PROBLEM [None]
  - ILL-DEFINED DISORDER [None]
  - INCREASED UPPER AIRWAY SECRETION [None]
  - INJURY [None]
  - LIVER FUNCTION TEST ABNORMAL [None]
  - NEPHROLITHIASIS [None]
  - OBSTRUCTIVE AIRWAYS DISORDER [None]
  - PNEUMONIA KLEBSIELLA [None]
  - POLLAKIURIA [None]
  - RESIDUAL URINE [None]
  - SEPSIS [None]
  - SURGERY [None]
  - UPPER RESPIRATORY TRACT INFECTION [None]
  - URINARY RETENTION [None]
  - URINARY TRACT INFECTION [None]
